FAERS Safety Report 8143318-1 (Version None)
Quarter: 2012Q1

REPORT INFORMATION
  Report Type: 
  Country: None (occurrence: None)
  Receive Date: 20120217
  Receipt Date: 20120213
  Transmission Date: 20120608
  Serious: Yes (Other)
  Sender: FDA-Public Use
  Company Number: JP-PFIZER INC-2010095929

PATIENT
  Sex: Female

DRUGS (7)
  1. GABAPENTIN [Suspect]
     Dosage: UNK
  2. LYRICA [Interacting]
     Dosage: 150 MG, 2X/DAY
     Route: 048
  3. GABAPENTIN [Suspect]
     Dosage: 1800MG A DAY
     Route: 048
  4. LYRICA [Interacting]
     Dosage: 150MG A DAY
     Dates: start: 20120119
  5. LYRICA [Interacting]
     Dosage: 200 MG/DAY, 100 MG EACH IN THE MORNING AND NIGHT
     Route: 048
     Dates: start: 20120202
  6. LYRICA [Interacting]
     Dosage: 75 MG, 3X/DAY
     Route: 048
     Dates: start: 20100722
  7. MORPHINE HYDROCHLORIDE [Interacting]
     Dosage: UNK
     Dates: start: 20090301

REACTIONS (11)
  - DIZZINESS [None]
  - PAIN [None]
  - VISION BLURRED [None]
  - DRUG INTERACTION [None]
  - CONSTIPATION [None]
  - NAUSEA [None]
  - HERPES ZOSTER [None]
  - POLLAKIURIA [None]
  - PRURITUS [None]
  - DRUG INEFFECTIVE [None]
  - HEADACHE [None]
